FAERS Safety Report 20787801 (Version 1)
Quarter: 2022Q2

REPORT INFORMATION
  Report Type: Spontaneous
  Country: IN (occurrence: IN)
  Receive Date: 20220505
  Receipt Date: 20220505
  Transmission Date: 20220721
  Serious: Yes (Death, Life-Threatening, Hospitalization, Other)
  Sender: FDA-Public Use
  Company Number: IN-ALLERGAN-2214200US

PATIENT
  Sex: Female

DRUGS (1)
  1. DAPSONE [Suspect]
     Active Substance: DAPSONE
     Indication: Acne
     Dosage: UNK
     Route: 061

REACTIONS (13)
  - Necrotising fasciitis [Fatal]
  - Urosepsis [Fatal]
  - Multiple organ dysfunction syndrome [Fatal]
  - Cardiac arrest [Recovering/Resolving]
  - Hypoxia [Fatal]
  - Gastroenteritis [Fatal]
  - Pancytopenia [Fatal]
  - Neutropenia [Fatal]
  - Condition aggravated [Fatal]
  - Lung infiltration [Fatal]
  - Bradycardia [Fatal]
  - Hypotension [Fatal]
  - Supraventricular tachycardia [Fatal]
